FAERS Safety Report 10040707 (Version 1)
Quarter: 2014Q1

REPORT INFORMATION
  Report Type: Spontaneous
  Country: US (occurrence: None)
  Receive Date: 20140326
  Receipt Date: 20140326
  Transmission Date: 20141002
  Serious: Yes (Disabling)
  Sender: FDA-Public Use
  Company Number: None

PATIENT
  Age: 35 Year
  Sex: Female
  Weight: 127.01 kg

DRUGS (1)
  1. METRONIDAZOLE [Suspect]
     Indication: BACTERIAL VAGINOSIS
     Dosage: 1 APPLICATOR FOR 5 DAYS ONCE DAILY VAGINAL
     Route: 067
     Dates: start: 20140320, end: 20140323

REACTIONS (10)
  - Fall [None]
  - Feeling jittery [None]
  - Dizziness [None]
  - Impaired driving ability [None]
  - Dizziness [None]
  - Neuropathy peripheral [None]
  - Coordination abnormal [None]
  - Pruritus [None]
  - Mental impairment [None]
  - Feeling abnormal [None]
